FAERS Safety Report 4429403-6 (Version None)
Quarter: 2004Q3

REPORT INFORMATION
  Report Type: 
  Country: None (occurrence: None)
  Receive Date: 20040816
  Receipt Date: 20040802
  Transmission Date: 20050211
  Serious: Yes (Life-Threatening)
  Sender: FDA-Public Use
  Company Number: 2004052435

PATIENT
  Sex: Female
  Weight: 65 kg

DRUGS (3)
  1. ZOLOFT [Suspect]
     Indication: ILL-DEFINED DISORDER
  2. TRAMADOL HCL [Concomitant]
  3. GABAPENTIN [Concomitant]

REACTIONS (2)
  - SELF MUTILATION [None]
  - SUICIDE ATTEMPT [None]
